FAERS Safety Report 5606155-5 (Version None)
Quarter: 2008Q1

REPORT INFORMATION
  Report Type: 
  Country: None (occurrence: None)
  Receive Date: 20080129
  Receipt Date: 20070117
  Transmission Date: 20080703
  Serious: No
  Sender: FDA-Public Use
  Company Number: A0631223A

PATIENT
  Age: 62 Year
  Sex: Female
  Weight: 63.6 kg

DRUGS (5)
  1. WELLBUTRIN [Suspect]
     Indication: DRUG USE FOR UNKNOWN INDICATION
     Dosage: 300MG UNKNOWN
     Route: 048
     Dates: start: 20061205, end: 20061207
  2. LIPITOR [Concomitant]
     Dosage: 20MG PER DAY
     Route: 048
  3. TRIAMCINOLONE [Concomitant]
     Route: 061
  4. CENTRUM VITAMIN [Concomitant]
     Route: 048
  5. UNKNOWN MEDICATION [Concomitant]
     Dosage: 1500MG PER DAY
     Route: 048

REACTIONS (3)
  - ADVERSE REACTION [None]
  - DIZZINESS [None]
  - HEADACHE [None]
